FAERS Safety Report 19609802 (Version 2)
Quarter: 2021Q3

REPORT INFORMATION
  Report Type: Spontaneous
  Country: US (occurrence: US)
  Receive Date: 20210726
  Receipt Date: 20210821
  Transmission Date: 20211014
  Serious: Yes (Hospitalization, Other)
  Sender: FDA-Public Use
  Company Number: US-LUPIN PHARMACEUTICALS INC.-2021-12549

PATIENT
  Sex: Female

DRUGS (1)
  1. POTASSIUM CHLORIDE EXTENDED RELEASE CAPSULE USP 750 MG (10 MEQ K) [Suspect]
     Active Substance: POTASSIUM CHLORIDE
     Indication: PRODUCT USED FOR UNKNOWN INDICATION
     Dosage: UNK
     Route: 065

REACTIONS (4)
  - Gastrointestinal disorder [Unknown]
  - Foreign body in gastrointestinal tract [Unknown]
  - Pneumonia aspiration [Unknown]
  - Pain [Unknown]

NARRATIVE: CASE EVENT DATE: 2021
